FAERS Safety Report 9518107 (Version 4)
Quarter: 2014Q2

REPORT INFORMATION
  Report Type: Report from Study
  Country: US (occurrence: US)
  Receive Date: 20130912
  Receipt Date: 20140403
  Transmission Date: 20141212
  Serious: Yes (Life-Threatening, Hospitalization)
  Sender: FDA-Public Use
  Company Number: US-JNJFOC-20130901044

PATIENT
  Age: 59 Year
  Sex: Female

DRUGS (3)
  1. STELARA [Suspect]
     Indication: PSORIASIS
     Route: 058
     Dates: start: 20111108
  2. STELARA [Suspect]
     Indication: PSORIASIS
     Route: 058
     Dates: start: 20121001, end: 201210
  3. LOTREL [Concomitant]
     Route: 065

REACTIONS (8)
  - Escherichia sepsis [Recovered/Resolved]
  - Cardiomyopathy [Recovered/Resolved]
  - Myocardial infarction [Recovered/Resolved]
  - Renal failure acute [Recovered/Resolved]
  - Hepatic enzyme increased [Recovering/Resolving]
  - Headache [Recovering/Resolving]
  - Leukopenia [Recovered/Resolved]
  - Escherichia urinary tract infection [Recovering/Resolving]
